FAERS Safety Report 19260174 (Version 6)
Quarter: 2021Q4

REPORT INFORMATION
  Report Type: Report from Study
  Country: GB (occurrence: GB)
  Receive Date: 20210515
  Receipt Date: 20211214
  Transmission Date: 20220303
  Serious: Yes (Other)
  Sender: FDA-Public Use
  Company Number: GB-SAMSUNG BIOEPIS-SB-2021-09605

PATIENT
  Age: 71 Year
  Sex: Male

DRUGS (6)
  1. HUMIRA [Suspect]
     Active Substance: ADALIMUMAB
     Indication: Product used for unknown indication
     Route: 058
  2. IMRALDI [Suspect]
     Active Substance: ADALIMUMAB
     Indication: Psoriatic arthropathy
     Route: 058
     Dates: start: 20210326
  3. DEXAMETHASONE [Suspect]
     Active Substance: DEXAMETHASONE
     Indication: Product used for unknown indication
     Route: 065
  4. ETANERCEPT [Suspect]
     Active Substance: ETANERCEPT
     Indication: Product used for unknown indication
     Route: 065
  5. ZOLADEX [Concomitant]
     Active Substance: GOSERELIN ACETATE
     Indication: Product used for unknown indication
     Dosage: UNKNOWN, IMPLANT
     Route: 065
  6. MORPHINE [Concomitant]
     Active Substance: MORPHINE
     Indication: Product used for unknown indication

REACTIONS (17)
  - Pollakiuria [Unknown]
  - Walking aid user [Unknown]
  - Wrong technique in product usage process [Unknown]
  - Nervous system disorder [Unknown]
  - Bone cancer [Unknown]
  - Pain [Unknown]
  - Tremor [Unknown]
  - Injection site pain [Unknown]
  - Therapeutic product effect incomplete [Unknown]
  - Prostate cancer [Unknown]
  - Pain in extremity [Unknown]
  - Mouth swelling [Unknown]
  - Swollen tongue [Not Recovered/Not Resolved]
  - Sleep disorder [Unknown]
  - Muscle spasms [Unknown]
  - Spinal disorder [Unknown]
  - Pharyngeal disorder [Unknown]
